FAERS Safety Report 4551369-9 (Version None)
Quarter: 2005Q1

REPORT INFORMATION
  Report Type: 
  Country: None (occurrence: None)
  Receive Date: 20050107
  Receipt Date: 20041224
  Transmission Date: 20050727
  Serious: Yes (Hospitalization)
  Sender: FDA-Public Use
  Company Number: 2004AP06333

PATIENT
  Age: 66 Year
  Sex: Male
  Weight: 48.5 kg

DRUGS (1)
  1. XYLOCAINE [Suspect]
     Indication: ANAESTHESIA
     Dates: start: 20041129, end: 20041129

REACTIONS (3)
  - ANAESTHETIC COMPLICATION [None]
  - PYREXIA [None]
  - THROAT IRRITATION [None]
